FAERS Safety Report 21131311 (Version 1)
Quarter: 2022Q3

REPORT INFORMATION
  Report Type: Spontaneous
  Country: US (occurrence: None)
  Receive Date: 20220725
  Receipt Date: 20220725
  Transmission Date: 20221026
  Serious: Yes (Other)
  Sender: FDA-Public Use
  Company Number: None

PATIENT
  Sex: Female
  Weight: 54 kg

DRUGS (3)
  1. MAGNESIUM CITRATE LEMON [Suspect]
     Active Substance: MAGNESIUM CITRATE
     Indication: Constipation
     Dosage: OTHER FREQUENCY : 1/DAY OR AS NEEDED;?
     Route: 048
     Dates: start: 20210501, end: 20220320
  2. CITROMA MAGNESIUM CITRATE [Suspect]
     Active Substance: MAGNESIUM CITRATE
     Indication: Constipation
     Dosage: OTHER FREQUENCY : 1/DAY OR AS NEEDED;?
     Route: 048
     Dates: start: 20220315, end: 20220725
  3. Was using magnesium citrate from Rite Aid, Kroger and Dollar tree [Concomitant]

REACTIONS (10)
  - Recalled product administered [None]
  - Abdominal distension [None]
  - Illness [None]
  - Vomiting [None]
  - Hyperhidrosis [None]
  - Dizziness [None]
  - Arthralgia [None]
  - Myalgia [None]
  - Back pain [None]
  - Inflammation [None]
